FAERS Safety Report 8791783 (Version 1)
Quarter: 2012Q4

REPORT INFORMATION
  Report Type: 
  Country: US (occurrence: US)
  Receive Date: 20120918
  Receipt Date: 20120918
  Transmission Date: 20130627
  Serious: Yes (Other)
  Sender: FDA-Public Use
  Company Number: US-ELI_LILLY_AND_COMPANY-US201209002172

PATIENT
  Age: 53 Year
  Sex: Female

DRUGS (8)
  1. CYMBALTA [Suspect]
     Indication: DEPRESSION
     Dosage: 60 mg, qd
     Dates: start: 2007, end: 201208
  2. ROPINIROLE [Concomitant]
     Indication: RESTLESS LEGS SYNDROME
     Dosage: 5 mg, UNK
  3. QUETIAPINE [Concomitant]
  4. KLOR-CON [Concomitant]
  5. SPIRONOLACTON [Concomitant]
  6. ANASTROZOLE [Concomitant]
  7. FUROSEMIDE [Concomitant]
  8. LACTULOSE [Concomitant]

REACTIONS (15)
  - Breast cancer female [Recovered/Resolved]
  - Limb crushing injury [Unknown]
  - Drug withdrawal syndrome [Not Recovered/Not Resolved]
  - Mood altered [Not Recovered/Not Resolved]
  - Crying [Not Recovered/Not Resolved]
  - Dysphoria [Not Recovered/Not Resolved]
  - Irritability [Not Recovered/Not Resolved]
  - Agitation [Not Recovered/Not Resolved]
  - Dizziness [Not Recovered/Not Resolved]
  - Paraesthesia [Not Recovered/Not Resolved]
  - Anxiety [Not Recovered/Not Resolved]
  - Confusional state [Not Recovered/Not Resolved]
  - Headache [Not Recovered/Not Resolved]
  - Lethargy [Not Recovered/Not Resolved]
  - Fall [Unknown]
